FAERS Safety Report 21756897 (Version 2)
Quarter: 2023Q1

REPORT INFORMATION
  Report Type: Report from Study
  Country: FR (occurrence: None)
  Receive Date: 20221220
  Receipt Date: 20230105
  Transmission Date: 20230417
  Serious: Yes (Death)
  Sender: FDA-Public Use
  Company Number: 2022A409293

PATIENT
  Age: 19106 Day
  Sex: Male
  Weight: 130 kg

DRUGS (14)
  1. EVUSHELD [Suspect]
     Active Substance: CILGAVIMAB\TIXAGEVIMAB
     Indication: COVID-19
     Dosage: ONCE/SINGLE ADMINISTRATION
     Route: 030
     Dates: start: 20220204
  2. EVEROLIMUS [Concomitant]
     Active Substance: EVEROLIMUS
  3. TACROLIMUS [Concomitant]
     Active Substance: TACROLIMUS
  4. CERTICAN [Concomitant]
     Active Substance: EVEROLIMUS
     Dosage: 1 MG TWICE A DAY
  5. SOLUPRED [Concomitant]
     Dosage: 1 MG TWICE A DAY
  6. TAHOR [Concomitant]
     Active Substance: ATORVASTATIN CALCIUM
     Dosage: 1 MG TWICE A DAY
  7. ESOMEPRAZOLE [Concomitant]
     Active Substance: ESOMEPRAZOLE
     Dosage: 1 MG TWICE A DAY
  8. SECTRAL [Concomitant]
     Active Substance: ACEBUTOLOL HYDROCHLORIDE
     Dosage: 1 MG TWICE A DAY
  9. SODIUM BICARBONATE [Concomitant]
     Active Substance: SODIUM BICARBONATE
     Dosage: 1 MG TWICE A DAY
  10. IRBESARTAN [Concomitant]
     Active Substance: IRBESARTAN
     Dosage: 1 MG TWICE A DAY
  11. ALFUZOSIN [Concomitant]
     Active Substance: ALFUZOSIN
     Dosage: 1 MG TWICE A DAY
  12. AMLODIPINE BESYLATE [Concomitant]
     Active Substance: AMLODIPINE BESYLATE
     Dosage: 1 MG TWICE A DAY
  13. ALLOPURINOL [Concomitant]
     Active Substance: ALLOPURINOL
     Dosage: 1 MG TWICE A DAY
  14. METFORMIN PAMOATE [Concomitant]
     Active Substance: METFORMIN PAMOATE
     Dosage: 1 MG TWICE A DAY

REACTIONS (2)
  - Brain cancer metastatic [Fatal]
  - Blood creatinine increased [Unknown]

NARRATIVE: CASE EVENT DATE: 20220709
